FAERS Safety Report 11196785 (Version 1)
Quarter: 2015Q2

REPORT INFORMATION
  Report Type: Spontaneous
  Country: DE (occurrence: DE)
  Receive Date: 20150617
  Receipt Date: 20150617
  Transmission Date: 20150821
  Serious: Yes (Other)
  Sender: FDA-Public Use
  Company Number: PHHY2015DE069299

PATIENT
  Sex: Male

DRUGS (3)
  1. ITRACONAZOLE. [Suspect]
     Active Substance: ITRACONAZOLE
     Indication: BRONCHOPULMONARY ASPERGILLOSIS ALLERGIC
     Route: 065
  2. PREDNISONE. [Suspect]
     Active Substance: PREDNISONE
     Indication: BRONCHOPULMONARY ASPERGILLOSIS ALLERGIC
     Dosage: 20 MG, QD
     Route: 048
  3. PREDNISONE. [Suspect]
     Active Substance: PREDNISONE
     Dosage: 10 MG, QD
     Route: 048

REACTIONS (5)
  - Bacterial test positive [Unknown]
  - Drug dependence [Recovered/Resolved]
  - Chronic obstructive pulmonary disease [Recovered/Resolved]
  - Aspergillus infection [Recovered/Resolved]
  - Type 1 diabetes mellitus [Recovered/Resolved]
